FAERS Safety Report 17965816 (Version 3)
Quarter: 2022Q3

REPORT INFORMATION
  Report Type: Spontaneous
  Country: US (occurrence: None)
  Receive Date: 20200701
  Receipt Date: 20220928
  Transmission Date: 20221027
  Serious: Yes (Death)
  Sender: FDA-Public Use
  Company Number: US-ROCHE-2628804

PATIENT
  Sex: Female

DRUGS (11)
  1. OCREVUS [Suspect]
     Active Substance: OCRELIZUMAB
     Indication: Multiple sclerosis
     Dosage: FIRST INFUSION
     Route: 042
     Dates: start: 20170828
  2. OCREVUS [Suspect]
     Active Substance: OCRELIZUMAB
     Dosage: LAST INFUSION
     Route: 042
     Dates: start: 20191217
  3. OCREVUS [Suspect]
     Active Substance: OCRELIZUMAB
     Route: 042
     Dates: start: 20170911
  4. OCREVUS [Suspect]
     Active Substance: OCRELIZUMAB
     Route: 042
     Dates: start: 20180212
  5. OCREVUS [Suspect]
     Active Substance: OCRELIZUMAB
     Route: 042
     Dates: start: 20180730
  6. OCREVUS [Suspect]
     Active Substance: OCRELIZUMAB
     Route: 042
     Dates: start: 20190114
  7. OCREVUS [Suspect]
     Active Substance: OCRELIZUMAB
     Route: 042
     Dates: start: 20190701
  8. BACLOFEN [Concomitant]
     Active Substance: BACLOFEN
  9. AMPYRA [Concomitant]
     Active Substance: DALFAMPRIDINE
  10. LISINOPRIL [Concomitant]
     Active Substance: LISINOPRIL
  11. PEPCID [Concomitant]
     Active Substance: FAMOTIDINE

REACTIONS (3)
  - Suspected COVID-19 [Fatal]
  - Asthenia [Unknown]
  - Infection [Unknown]
